FAERS Safety Report 9193091 (Version 1)
Quarter: 2013Q1

REPORT INFORMATION
  Report Type: Spontaneous
  Country: BR (occurrence: BR)
  Receive Date: 20130327
  Receipt Date: 20130327
  Transmission Date: 20140127
  Serious: Yes (Hospitalization, Other)
  Sender: FDA-Public Use
  Company Number: BR-ASTRAZENECA-2013SE18016

PATIENT
  Age: 0 Week
  Sex: Male
  Weight: 3.1 kg

DRUGS (1)
  1. SYMBICORT TURBUHALER [Suspect]
     Dosage: 320/9 MCG, TWO TIMES A DAY
     Route: 064
     Dates: start: 2012

REACTIONS (2)
  - Neonatal respiratory distress syndrome [Recovered/Resolved]
  - Jaundice neonatal [Recovered/Resolved]
